FAERS Safety Report 5608707-5 (Version None)
Quarter: 2008Q1

REPORT INFORMATION
  Report Type: 
  Country: None (occurrence: None)
  Receive Date: 20080131
  Receipt Date: 20080118
  Transmission Date: 20080703
  Serious: Yes (Hospitalization)
  Sender: FDA-Public Use
  Company Number: FR-PFIZER INC-2008006264

PATIENT
  Age: 71 Year
  Sex: Female

DRUGS (4)
  1. AMLOR [Suspect]
     Dosage: TEXT:1 DOSE FORM
     Route: 048
     Dates: start: 20071009, end: 20071016
  2. VANCOMYCIN [Suspect]
     Route: 042
     Dates: start: 20070920, end: 20071015
  3. RIFADIN [Suspect]
     Route: 042
     Dates: start: 20070920, end: 20071015
  4. NEXIUM [Suspect]
     Dosage: TEXT:1 DOSE FORM
     Route: 048

REACTIONS (3)
  - ENANTHEMA [None]
  - RASH MACULO-PAPULAR [None]
  - RASH PUSTULAR [None]
